FAERS Safety Report 7898354-7 (Version None)
Quarter: 2011Q4

REPORT INFORMATION
  Report Type: 
  Country: None (occurrence: None)
  Receive Date: 20111107
  Receipt Date: 20111102
  Transmission Date: 20120403
  Serious: Yes (Other)
  Sender: FDA-Public Use
  Company Number: US-AMGEN-USASP2011057115

PATIENT

DRUGS (1)
  1. VECTIBIX [Suspect]
     Indication: COLORECTAL CANCER

REACTIONS (3)
  - HYPOXIA [None]
  - HYPERTENSION [None]
  - EMOTIONAL DISTRESS [None]
